FAERS Safety Report 4469540-3 (Version None)
Quarter: 2004Q3

REPORT INFORMATION
  Report Type: 
  Country: None (occurrence: None)
  Receive Date: 20040920
  Receipt Date: 20040701
  Transmission Date: 20050211
  Serious: Yes (Other)
  Sender: FDA-Public Use
  Company Number: PHEH2004US03650

PATIENT
  Age: 51 Year
  Sex: Female

DRUGS (12)
  1. ZOMETA [Suspect]
     Indication: BREAST CANCER
     Dosage: 4 MG MONTHLY, INTRAVENOUS
     Route: 042
     Dates: start: 20030501, end: 20031101
  2. AREDIA [Suspect]
     Indication: BREAST CANCER
     Dosage: 90 MG MONTHLY, INTRAVENOUS
     Route: 042
     Dates: start: 20031201, end: 20040501
  3. FEMARA [Concomitant]
  4. CELEBREX [Concomitant]
  5. CALCIUM CARBONATE [Concomitant]
  6. MULTIVITAMIN [Concomitant]
  7. OXYCONTIN [Concomitant]
  8. ZOFRAN [Concomitant]
  9. COMPAZINE [Concomitant]
  10. MIRALAX [Concomitant]
  11. KLOR-CON [Concomitant]
  12. BUMETANIDE [Concomitant]

REACTIONS (5)
  - BONE DISORDER [None]
  - IMPAIRED HEALING [None]
  - OSTEONECROSIS [None]
  - PAIN IN JAW [None]
  - TOOTH EXTRACTION [None]
